FAERS Safety Report 4923266-8 (Version None)
Quarter: 2006Q1

REPORT INFORMATION
  Report Type: 
  Country: None (occurrence: None)
  Receive Date: 20060227
  Receipt Date: 20051102
  Transmission Date: 20060701
  Serious: Yes (Other)
  Sender: FDA-Public Use
  Company Number: US-SP-2005-02311

PATIENT
  Age: 59 Year
  Sex: Female

DRUGS (3)
  1. TUBERSOL [Suspect]
     Indication: TUBERCULIN TEST
     Route: 023
     Dates: start: 20051007
  2. TUBERSOL [Suspect]
     Route: 023
     Dates: start: 20051007
  3. TUBERSOL [Suspect]
     Route: 023
     Dates: start: 20051007

REACTIONS (8)
  - DYSPNOEA [None]
  - INJECTION SITE ERYTHEMA [None]
  - INJECTION SITE INDURATION [None]
  - INJECTION SITE PRURITUS [None]
  - INJECTION SITE REACTION [None]
  - INJECTION SITE SWELLING [None]
  - PALPITATIONS [None]
  - PARAESTHESIA [None]
